FAERS Safety Report 14217127 (Version 1)
Quarter: 2017Q4

REPORT INFORMATION
  Report Type: Spontaneous
  Country: JP (occurrence: JP)
  Receive Date: 20171122
  Receipt Date: 20171122
  Transmission Date: 20180321
  Serious: Yes (Life-Threatening, Hospitalization)
  Sender: FDA-Public Use
  Company Number: JP-LUPIN PHARMACEUTICALS INC.-2016-05425

PATIENT
  Age: 54 Year
  Sex: Female

DRUGS (3)
  1. GLIMEPIRIDE. [Suspect]
     Active Substance: GLIMEPIRIDE
     Indication: SUICIDE ATTEMPT
     Dosage: 30 DF,QD,
     Route: 065
  2. MIGLITOL. [Suspect]
     Active Substance: MIGLITOL
     Indication: SUICIDE ATTEMPT
     Dosage: 50 DF,QD,
     Route: 065
  3. METFORMIN [Suspect]
     Active Substance: METFORMIN HYDROCHLORIDE
     Indication: SUICIDE ATTEMPT
     Dosage: 3 DF,QD,
     Route: 065

REACTIONS (2)
  - Intentional overdose [Unknown]
  - Hypoglycaemia [Recovered/Resolved]
